FAERS Safety Report 4476193-7 (Version None)
Quarter: 2004Q3

REPORT INFORMATION
  Report Type: 
  Country: None (occurrence: None)
  Receive Date: 20040923
  Receipt Date: 20040721
  Transmission Date: 20050211
  Serious: No
  Sender: FDA-Public Use
  Company Number: USA040774019

PATIENT
  Age: 70 Year
  Sex: Female
  Weight: 60 kg

DRUGS (3)
  1. FORTEO [Suspect]
     Indication: OSTEOPOROSIS
     Dosage: 20 UG DAY
     Dates: start: 20040604
  2. MIACALCIN [Concomitant]
  3. MULTIVITAMIN [Concomitant]

REACTIONS (4)
  - DIARRHOEA [None]
  - DYSGEUSIA [None]
  - NAUSEA [None]
  - PYREXIA [None]
